FAERS Safety Report 18263308 (Version 1)
Quarter: 2020Q3

REPORT INFORMATION
  Report Type: Spontaneous
  Country: US (occurrence: US)
  Receive Date: 20200914
  Receipt Date: 20200914
  Transmission Date: 20201103
  Serious: No
  Sender: FDA-Public Use
  Company Number: US-RECKITT BENCKISER HEALTHCARE INT LIMITED-RB-82902-2020

PATIENT
  Age: 60 Year
  Sex: Male

DRUGS (2)
  1. MUCINEX D MAXIMUM STRENGTH [Suspect]
     Active Substance: GUAIFENESIN\PSEUDOEPHEDRINE HYDROCHLORIDE
     Indication: NASOPHARYNGITIS
     Dosage: 1200 MILLIGRAM
     Route: 048
     Dates: start: 20200119
  2. MUCINEX D MAXIMUM STRENGTH [Suspect]
     Active Substance: GUAIFENESIN\PSEUDOEPHEDRINE HYDROCHLORIDE
     Dosage: TOOK 1200MG AT 06:00 AND HE BROKE THE TABLET IN TWO AND INGESTED A PART OF IT AT 18:00
     Route: 048
     Dates: start: 20200120, end: 20200120

REACTIONS (5)
  - Palpitations [Recovered/Resolved]
  - Wrong technique in product usage process [Recovered/Resolved]
  - Heart rate increased [Recovered/Resolved]
  - Condition aggravated [Recovered/Resolved]
  - Discomfort [Recovered/Resolved]

NARRATIVE: CASE EVENT DATE: 202001
